FAERS Safety Report 8243131-0 (Version None)
Quarter: 2012Q1

REPORT INFORMATION
  Report Type: 
  Country: None (occurrence: None)
  Receive Date: 20120329
  Receipt Date: 20120319
  Transmission Date: 20120608
  Serious: Yes (Hospitalization, Other)
  Sender: FDA-Public Use
  Company Number: FI-ABBOTT-05P-055-0305791-00

PATIENT
  Sex: Female

DRUGS (17)
  1. KALCIPOS-D [Concomitant]
     Indication: JUVENILE ARTHRITIS
     Route: 048
  2. HUMIRA [Suspect]
     Indication: JUVENILE ARTHRITIS
     Route: 058
     Dates: start: 20040401, end: 20050401
  3. VALPROIC ACID [Concomitant]
     Indication: PRODUCT USED FOR UNKNOWN INDICATION
     Dates: start: 20050501, end: 20080701
  4. ENBREL [Suspect]
     Dates: start: 20070606, end: 20090805
  5. IMURAN [Concomitant]
     Indication: JUVENILE ARTHRITIS
     Route: 048
     Dates: start: 20050301, end: 20050401
  6. PIROXICAM [Concomitant]
     Indication: PRODUCT USED FOR UNKNOWN INDICATION
     Dosage: GEL, IF NEEDED
  7. METOPROLOL SUCCINATE [Concomitant]
     Indication: PRODUCT USED FOR UNKNOWN INDICATION
     Dates: start: 20080501
  8. METHOTREXATE [Concomitant]
     Indication: JUVENILE ARTHRITIS
     Route: 048
     Dates: end: 20050401
  9. OXIKLORIN [Concomitant]
     Indication: JUVENILE ARTHRITIS
     Route: 048
     Dates: end: 20050401
  10. FOLIC ACID [Concomitant]
     Indication: PRODUCT USED FOR UNKNOWN INDICATION
  11. IBUPROFEN [Concomitant]
     Indication: PRODUCT USED FOR UNKNOWN INDICATION
     Dosage: IF NEEDED
  12. PARA-TABS [Concomitant]
     Indication: PRODUCT USED FOR UNKNOWN INDICATION
     Dosage: IF NEEDED
  13. ENBREL [Suspect]
     Indication: JUVENILE ARTHRITIS
     Dates: start: 20000601, end: 20010901
  14. PREDNISOLONE [Concomitant]
     Indication: JUVENILE ARTHRITIS
     Route: 048
  15. MABTHERA [Concomitant]
     Indication: PRODUCT USED FOR UNKNOWN INDICATION
     Dates: start: 20060401
  16. DITRIM DUPLO [Concomitant]
     Indication: ANTIFUNGAL PROPHYLAXIS
     Route: 048
  17. NIFANGIN [Concomitant]
     Indication: PRODUCT USED FOR UNKNOWN INDICATION
     Dates: start: 20071125, end: 20080501

REACTIONS (4)
  - MYCOBACTERIUM AVIUM COMPLEX INFECTION [None]
  - CONVULSION [None]
  - PYREXIA [None]
  - EPILEPSY [None]
